FAERS Safety Report 8335586-8 (Version None)
Quarter: 2012Q2

REPORT INFORMATION
  Report Type: 
  Country: None (occurrence: None)
  Receive Date: 20120504
  Receipt Date: 20120425
  Transmission Date: 20120825
  Serious: Yes (Other)
  Sender: FDA-Public Use
  Company Number: US-PAR PHARMACEUTICAL, INC-2012SCPR004343

PATIENT

DRUGS (3)
  1. IBUPROFEN [Suspect]
     Indication: MIGRAINE
     Dosage: UNK, UNKNOWN
     Route: 065
  2. DICHLORALPHENAZONE W/ISOMETHEPTENE/PARACETAM. [Suspect]
     Indication: MIGRAINE
     Dosage: UNK, UNKNOWN
     Route: 065
  3. IMMUNE GLOBULIN NOS [Concomitant]
     Indication: POLYMYOSITIS
     Dosage: UNK, MONTHLY
     Route: 042

REACTIONS (1)
  - DRUG ERUPTION [None]
